FAERS Safety Report 4606942-6 (Version None)
Quarter: 2005Q1

REPORT INFORMATION
  Report Type: 
  Country: None (occurrence: None)
  Receive Date: 20050310
  Receipt Date: 20050301
  Transmission Date: 20050727
  Serious: Yes (Hospitalization)
  Sender: FDA-Public Use
  Company Number: 212782

PATIENT
  Age: 14 Year
  Sex: Male
  Weight: 61.2 kg

DRUGS (1)
  1. NUTROPIN AQ [Suspect]
     Indication: GROWTH HORMONE DEFICIENCY
     Dosage: 3.5 MG, QD, SUBCUTANEOUS
     Route: 058
     Dates: start: 20030417

REACTIONS (2)
  - RETROPERITONEAL HAEMATOMA [None]
  - ROAD TRAFFIC ACCIDENT [None]
